FAERS Safety Report 12900416 (Version 1)
Quarter: 2016Q4

REPORT INFORMATION
  Report Type: Spontaneous
  Country: US (occurrence: US)
  Receive Date: 20161031
  Receipt Date: 20161031
  Transmission Date: 20170207
  Serious: Yes (Other)
  Sender: FDA-Public Use
  Company Number: None

PATIENT
  Age: 72 Year
  Sex: Female
  Weight: 55.8 kg

DRUGS (1)
  1. INTERFERON-ALPHA 2B [Suspect]
     Active Substance: INTERFERON ALFA-2B
     Indication: OVARIAN CANCER RECURRENT
     Dosage: 2 MILLION INTERNATIONAL U VARIES PER PROTOCOL INTRAPERITONEAL
     Route: 033
     Dates: start: 20160823

REACTIONS (1)
  - Female genital tract fistula [None]

NARRATIVE: CASE EVENT DATE: 20161020
